FAERS Safety Report 6877808-6 (Version None)
Quarter: 2010Q3

REPORT INFORMATION
  Report Type: 
  Country: None (occurrence: None)
  Receive Date: 20100727
  Receipt Date: 20100406
  Transmission Date: 20110219
  Serious: No
  Sender: FDA-Public Use
  Company Number: US-ABBOTT-10P-163-0638017-00

PATIENT
  Sex: Female

DRUGS (2)
  1. SYNTHROID [Suspect]
     Indication: AUTOIMMUNE THYROIDITIS
     Route: 048
     Dates: start: 20090701, end: 20100201
  2. SYNTHROID [Suspect]
     Route: 048
     Dates: start: 20100201

REACTIONS (3)
  - JOINT SWELLING [None]
  - OEDEMA PERIPHERAL [None]
  - WEIGHT INCREASED [None]
